FAERS Safety Report 17735729 (Version 7)
Quarter: 2020Q4

REPORT INFORMATION
  Report Type: Report from Study
  Country: US (occurrence: US)
  Receive Date: 20200501
  Receipt Date: 20201103
  Transmission Date: 20210113
  Serious: Yes (Other)
  Sender: FDA-Public Use
  Company Number: NVSC2020US117290

PATIENT
  Sex: Male

DRUGS (2)
  1. COREG [Concomitant]
     Active Substance: CARVEDILOL
     Indication: PRODUCT USED FOR UNKNOWN INDICATION
     Dosage: UNK
     Route: 065
  2. ENTRESTO [Suspect]
     Active Substance: SACUBITRIL\VALSARTAN
     Indication: CARDIAC FAILURE
     Dosage: UNK
     Route: 048
     Dates: start: 20200423

REACTIONS (11)
  - Renal impairment [Unknown]
  - Wrong technique in product usage process [Unknown]
  - Pollakiuria [Unknown]
  - Hyperhidrosis [Unknown]
  - Weight increased [Recovering/Resolving]
  - Pain in extremity [Recovering/Resolving]
  - Weight fluctuation [Unknown]
  - Insomnia [Unknown]
  - Somnolence [Unknown]
  - Dizziness [Unknown]
  - Poor quality sleep [Unknown]
